FAERS Safety Report 4627856-1 (Version None)
Quarter: 2005Q2

REPORT INFORMATION
  Report Type: 
  Country: None (occurrence: None)
  Receive Date: 20050406
  Receipt Date: 20030505
  Transmission Date: 20051028
  Serious: Yes (Hospitalization)
  Sender: FDA-Public Use
  Company Number: NSADSS2003022499

PATIENT
  Sex: Male

DRUGS (7)
  1. REOPRO [Suspect]
     Route: 042
     Dates: start: 20030429
  2. REOPRO [Suspect]
     Route: 042
     Dates: start: 20030429
  3. PLAVIX [Concomitant]
     Route: 049
     Dates: start: 20030429
  4. BELOC MITE [Concomitant]
     Route: 049
     Dates: start: 20030429
  5. ZOCOR [Concomitant]
     Dates: start: 20030429
  6. HEPARIN [Concomitant]
     Dates: start: 20030429
  7. ASPISOL [Concomitant]
     Route: 041
     Dates: start: 20030429

REACTIONS (1)
  - RHABDOMYOLYSIS [None]
